FAERS Safety Report 7113462-6 (Version None)
Quarter: 2010Q4

REPORT INFORMATION
  Report Type: 
  Country: None (occurrence: None)
  Receive Date: 20101119
  Receipt Date: 20101104
  Transmission Date: 20110411
  Serious: No
  Sender: FDA-Public Use
  Company Number: US-PFIZER INC-2010148342

PATIENT
  Age: 38 Year
  Sex: Female
  Weight: 56.689 kg

DRUGS (1)
  1. ADVIL [Suspect]
     Indication: HEADACHE
     Dosage: 2 DF, SINGLE
     Route: 048
     Dates: start: 20101104, end: 20101104

REACTIONS (1)
  - HEAD DISCOMFORT [None]
